FAERS Safety Report 9068220 (Version 2)
Quarter: 2013Q2

REPORT INFORMATION
  Report Type: Spontaneous
  Country: CO (occurrence: CO)
  Receive Date: 20130206
  Receipt Date: 20130415
  Transmission Date: 20140414
  Serious: Yes (Other)
  Sender: FDA-Public Use
  Company Number: CO-PFIZER INC-2013049182

PATIENT
  Age: 14 Year
  Sex: Male

DRUGS (1)
  1. GENOTROPIN [Suspect]
     Indication: BODY HEIGHT BELOW NORMAL
     Dosage: 2 MG, EVERY NIGHT
     Route: 058

REACTIONS (4)
  - Diarrhoea haemorrhagic [Recovered/Resolved]
  - Headache [Unknown]
  - Malaise [Unknown]
  - Off label use [Unknown]
